FAERS Safety Report 26180685 (Version 1)
Quarter: 2025Q4

REPORT INFORMATION
  Report Type: Spontaneous
  Country: US (occurrence: None)
  Receive Date: 20251219
  Receipt Date: 20251219
  Transmission Date: 20260117
  Serious: Yes (Disabling)
  Sender: FDA-CTU
  Company Number: None

PATIENT
  Age: 55 Year
  Sex: Female
  Weight: 74.25 kg

DRUGS (1)
  1. CIPRO [Suspect]
     Active Substance: CIPROFLOXACIN HYDROCHLORIDE
     Indication: Bile duct stone
     Dosage: OTHER QUANTITY : 22 TABLET(S);?FREQUENCY : TWICE A DAY;
     Route: 048
     Dates: start: 20170528, end: 20170830

REACTIONS (6)
  - Tendon pain [None]
  - Tendonitis [None]
  - Gait inability [None]
  - Arthralgia [None]
  - Asthenia [None]
  - Impaired work ability [None]

NARRATIVE: CASE EVENT DATE: 20170823
